FAERS Safety Report 4625624-8 (Version None)
Quarter: 2005Q1

REPORT INFORMATION
  Report Type: 
  Country: None (occurrence: None)
  Receive Date: 20050330
  Receipt Date: 20050315
  Transmission Date: 20050727
  Serious: Yes (Other)
  Sender: FDA-Public Use
  Company Number: EWC050343230

PATIENT
  Age: 71 Year
  Sex: Male

DRUGS (4)
  1. PERGOLIDE MESYLATE [Suspect]
     Dosage: 3 MG/1 DAY
     Dates: start: 20000101, end: 20050113
  2. JUMEX (SELEGILINE) [Concomitant]
  3. SINEMET [Concomitant]
  4. SERMION (NICERGOLINE) [Concomitant]

REACTIONS (3)
  - AORTIC DISORDER [None]
  - AORTIC VALVE SCLEROSIS [None]
  - ENDOCARDIAL FIBROSIS [None]
